FAERS Safety Report 19872053 (Version 1)
Quarter: 2021Q3

REPORT INFORMATION
  Report Type: Spontaneous
  Country: US (occurrence: US)
  Receive Date: 20210923
  Receipt Date: 20210923
  Transmission Date: 20211014
  Serious: Yes (Disabling)
  Sender: FDA-Public Use
  Company Number: None

PATIENT
  Age: 37 Year
  Sex: Male
  Weight: 81 kg

DRUGS (8)
  1. VITAMIN D [Concomitant]
     Active Substance: VITAMIN D NOS
  2. KUSH BURST DELTA?8 INFUSED PINNAPPLE GUMMY (50 MG) [Suspect]
     Active Substance: .DELTA.8-TETRAHYDROCANNABINOL\HERBALS
     Indication: SLEEP DISORDER
     Dosage: ?          QUANTITY:1 GUMMY;?
     Route: 048
  3. CLOMID [Concomitant]
     Active Substance: CLOMIPHENE CITRATE
  4. FOLIC ACID. [Concomitant]
     Active Substance: FOLIC ACID
  5. LIONS MANE [Concomitant]
  6. LORAZEPAM. [Concomitant]
     Active Substance: LORAZEPAM
  7. VITAMIN C [Concomitant]
     Active Substance: ASCORBIC ACID
  8. MULTIVITAMIN [Concomitant]
     Active Substance: VITAMINS

REACTIONS (6)
  - Anxiety [None]
  - Tremor [None]
  - Toxicity to various agents [None]
  - Paraesthesia [None]
  - Feeling abnormal [None]
  - Decreased activity [None]

NARRATIVE: CASE EVENT DATE: 20210827
